FAERS Safety Report 15824362 (Version 1)
Quarter: 2019Q1

REPORT INFORMATION
  Report Type: Report from Study
  Country: TW (occurrence: TW)
  Receive Date: 20190115
  Receipt Date: 20190115
  Transmission Date: 20190417
  Serious: Yes (Other)
  Sender: FDA-Public Use
  Company Number: TW-SUN PHARMACEUTICAL INDUSTRIES LTD-2018R1-196010

PATIENT
  Age: 67 Year
  Sex: Male

DRUGS (4)
  1. BARACLUDE [Concomitant]
     Active Substance: ENTECAVIR
     Indication: HEPATITIS B REACTIVATION
     Dosage: UNK
     Route: 065
  2. CARBOPLATIN. [Suspect]
     Active Substance: CARBOPLATIN
     Indication: BLADDER CANCER
     Dosage: UNK
     Route: 065
  3. BARACLUDE [Concomitant]
     Active Substance: ENTECAVIR
     Indication: PROPHYLAXIS
  4. VINBLASTINE [Suspect]
     Active Substance: VINBLASTINE
     Indication: BLADDER CANCER
     Dosage: UNK
     Route: 065

REACTIONS (2)
  - Septic shock [Not Recovered/Not Resolved]
  - Nephropathy toxic [Not Recovered/Not Resolved]
